FAERS Safety Report 23645781 (Version 1)
Quarter: 2024Q1

REPORT INFORMATION
  Report Type: Other
  Country: US (occurrence: None)
  Receive Date: 20240319
  Receipt Date: 20240319
  Transmission Date: 20240410
  Serious: Yes (Death)
  Sender: FDA-Public Use
  Company Number: US-ROCHE-3527161

PATIENT
  Age: 67 Year
  Sex: Male

DRUGS (6)
  1. TECENTRIQ [Suspect]
     Active Substance: ATEZOLIZUMAB
     Indication: Lung neoplasm malignant
     Dosage: VIAL?ONCE ROUTE: INTRAVENOUS, INFUSE OVER 60 MIN?DATE OF SERVICE REPORTED ON 22/MAY/2023.
     Route: 042
     Dates: start: 20230501, end: 20230703
  2. KEPPRA [Concomitant]
     Active Substance: LEVETIRACETAM
  3. EMLA [Concomitant]
     Active Substance: LIDOCAINE\PRILOCAINE
  4. ZOFRAN [Concomitant]
     Active Substance: ONDANSETRON HYDROCHLORIDE
  5. PROTONIX [Concomitant]
     Active Substance: PANTOPRAZOLE SODIUM
  6. COMPAZINE [Concomitant]
     Active Substance: PROCHLORPERAZINE MALEATE

REACTIONS (1)
  - Death [Fatal]
